FAERS Safety Report 12331058 (Version 1)
Quarter: 2016Q2

REPORT INFORMATION
  Report Type: Spontaneous
  Country: US (occurrence: None)
  Receive Date: 20160502
  Receipt Date: 20160502
  Transmission Date: 20160815
  Serious: Yes (Congenital Anomaly)
  Sender: FDA-Public Use
  Company Number: None

PATIENT
  Age: 23 Year
  Sex: Female
  Weight: 65.77 kg

DRUGS (2)
  1. PRENATAL VITAMIN [Concomitant]
     Active Substance: VITAMINS
  2. CITALOPRAM [Suspect]
     Active Substance: CITALOPRAM HYDROBROMIDE
     Indication: DEPRESSION
     Route: 048
     Dates: start: 20130715, end: 20160429

REACTIONS (4)
  - Coarctation of the aorta [None]
  - Maternal drugs affecting foetus [None]
  - Heart valve stenosis [None]
  - Cardiac septal defect [None]

NARRATIVE: CASE EVENT DATE: 20150328
